FAERS Safety Report 18194088 (Version 1)
Quarter: 2020Q3

REPORT INFORMATION
  Report Type: Spontaneous
  Country: IE (occurrence: IE)
  Receive Date: 20200825
  Receipt Date: 20200825
  Transmission Date: 20201103
  Serious: Yes (Other)
  Sender: FDA-Public Use
  Company Number: IE-JNJFOC-20200824789

PATIENT
  Age: 34 Year
  Sex: Male

DRUGS (4)
  1. INFLIXIMAB, RECOMBINANT [Suspect]
     Active Substance: INFLIXIMAB
     Dosage: 18/06/2020 AND 06/07/2020 GIVEN TWO WEEKS APART (LOADING DOSE 400MG)
     Route: 042
     Dates: start: 20200706
  2. INFLIXIMAB, RECOMBINANT [Suspect]
     Active Substance: INFLIXIMAB
     Indication: COLITIS ULCERATIVE
     Dosage: 18/06/2020 AND 06/07/2020 GIVEN TWO WEEKS APART (LOADING DOSE 400MG)
     Route: 042
     Dates: start: 20200618
  3. INFLIXIMAB, RECOMBINANT [Suspect]
     Active Substance: INFLIXIMAB
     Dosage: REGULAR INFUSIONS
     Route: 042
     Dates: start: 2014, end: 2019
  4. SALOFALK                           /00747601/ [Concomitant]
     Active Substance: MESALAMINE
     Dosage: CONTINUING?500MG

REACTIONS (4)
  - Chest discomfort [Recovered/Resolved]
  - Erythema [Recovered/Resolved]
  - Dyspnoea [Recovered/Resolved]
  - Ocular hyperaemia [Recovered/Resolved]

NARRATIVE: CASE EVENT DATE: 20200706
